FAERS Safety Report 24055629 (Version 3)
Quarter: 2024Q3

REPORT INFORMATION
  Report Type: Spontaneous
  Country: AU (occurrence: AU)
  Receive Date: 20240705
  Receipt Date: 20240809
  Transmission Date: 20241016
  Serious: Yes (Life-Threatening, Hospitalization, Other)
  Sender: ANI
  Company Number: AU-ANIPHARMA-2024-AU-000300

PATIENT
  Age: 56 Year
  Sex: Female

DRUGS (13)
  1. ANASTROZOLE [Suspect]
     Active Substance: ANASTROZOLE
     Indication: Product used for unknown indication
     Route: 048
  2. FAMOTIDINE [Suspect]
     Active Substance: FAMOTIDINE
  3. LORATADINE [Suspect]
     Active Substance: LORATADINE
  4. METFORMIN HYDROCHLORIDE [Suspect]
     Active Substance: METFORMIN HYDROCHLORIDE
  5. MONTELUKAST SODIUM [Suspect]
     Active Substance: MONTELUKAST\MONTELUKAST SODIUM
  6. ESOMEPRAZOLE [Suspect]
     Active Substance: ESOMEPRAZOLE
     Route: 048
  7. ROSUVASTATIN [Suspect]
     Active Substance: ROSUVASTATIN\ROSUVASTATIN CALCIUM
     Route: 048
  8. TOZINAMERAN [Suspect]
     Active Substance: TOZINAMERAN
  9. NOVORAPID [Suspect]
     Active Substance: INSULIN ASPART
  10. INSULIN DEFALAN NOS [Suspect]
     Active Substance: INSULIN DEFALAN (BOVINE)\INSULIN DEFALAN (PORCINE)
  11. PHENERGAN [Suspect]
     Active Substance: PROMETHAZINE HYDROCHLORIDE
  12. ALBUTEROL [Suspect]
     Active Substance: ALBUTEROL
  13. APIXABAN [Suspect]
     Active Substance: APIXABAN

REACTIONS (10)
  - Pneumonia haemophilus [Unknown]
  - Respiratory syncytial virus test positive [Unknown]
  - Human rhinovirus test positive [Unknown]
  - Respiratory failure [Recovering/Resolving]
  - Tongue biting [Unknown]
  - Upper respiratory tract infection [Unknown]
  - COVID-19 [Unknown]
  - Mouth haemorrhage [Unknown]
  - Pneumonia [Unknown]
  - Anaphylactic reaction [Unknown]

NARRATIVE: CASE EVENT DATE: 20180718
